FAERS Safety Report 4404004-4 (Version None)
Quarter: 2004Q2

REPORT INFORMATION
  Report Type: 
  Country: None (occurrence: None)
  Receive Date: 20040618
  Receipt Date: 20040226
  Transmission Date: 20050107
  Serious: No
  Sender: FDA-Public Use
  Company Number: US-JNJFOC-20040300133

PATIENT
  Age: 44 Year
  Sex: Female
  Weight: 56.246 kg

DRUGS (2)
  1. ORTHO EVRA [Suspect]
     Indication: DYSMENORRHOEA
     Dosage: 1 DOSE(S), 1 IN 1 WEEK, TRANSDERMAL
     Route: 062
     Dates: start: 20040125
  2. VICODIN [Concomitant]

REACTIONS (2)
  - ABDOMINAL PAIN [None]
  - METRORRHAGIA [None]
